FAERS Safety Report 8857458 (Version 6)
Quarter: 2013Q1

REPORT INFORMATION
  Report Type: Spontaneous
  Country: US (occurrence: US)
  Receive Date: 20121024
  Receipt Date: 20130115
  Transmission Date: 20140127
  Serious: Yes (Hospitalization, Disabling, Other)
  Sender: FDA-Public Use
  Company Number: US-009507513-1204USA04251

PATIENT
  Sex: 0

DRUGS (13)
  1. FOSAMAX [Suspect]
     Indication: OSTEOPOROSIS
     Dosage: 10 MG, QD
     Route: 048
     Dates: start: 200010, end: 200110
  2. FOSAMAX [Suspect]
     Indication: OSTEOPENIA
     Dosage: 70 MG, QW
     Route: 048
     Dates: start: 200110, end: 200612
  3. BONIVA [Suspect]
     Indication: OSTEOPOROSIS
     Dosage: 150 MG, QM
     Route: 048
     Dates: start: 20061110, end: 200808
  4. ALENDRONATE SODIUM [Suspect]
     Indication: OSTEOPOROSIS
     Dosage: 70 MG, QW
     Route: 048
     Dates: start: 20080828, end: 201109
  5. ALENDRONATE SODIUM [Suspect]
     Indication: OSTEOPENIA
  6. ACTONEL [Suspect]
     Indication: PRODUCT USED FOR UNKNOWN INDICATION
     Dosage: UNK, QW
  7. PREDNISONE [Concomitant]
     Indication: ASTHMA
     Dosage: UNK
     Dates: start: 1997
  8. ZYRTEC [Concomitant]
     Indication: ASTHMA
  9. SINGULAIR [Concomitant]
     Indication: ASTHMA
  10. FEMHRT [Concomitant]
     Indication: MENOPAUSAL SYMPTOMS
  11. PREMPRO [Concomitant]
  12. CALCIUM (UNSPECIFIED) [Concomitant]
     Indication: OSTEOPOROSIS
  13. VITAMIN D (UNSPECIFIED) [Concomitant]
     Indication: OSTEOPOROSIS

REACTIONS (28)
  - Femur fracture [Unknown]
  - Femur fracture [Unknown]
  - Open reduction of fracture [Unknown]
  - Open reduction of fracture [Unknown]
  - Fall [Unknown]
  - Fall [Unknown]
  - Hyperaldosteronism [Unknown]
  - Spinal fusion surgery [Unknown]
  - Hypertension [Unknown]
  - Hyperlipidaemia [Unknown]
  - Vitamin D deficiency [Unknown]
  - Calcium deficiency [Unknown]
  - Hot flush [Unknown]
  - Mood altered [Unknown]
  - Vulvovaginal dryness [Unknown]
  - Insomnia [Unknown]
  - Dermal cyst [Unknown]
  - Steroid therapy [Unknown]
  - Depression [Unknown]
  - Vaginitis bacterial [Unknown]
  - Lower limb fracture [Unknown]
  - Chronic obstructive pulmonary disease [Unknown]
  - Intervertebral disc protrusion [Unknown]
  - Nerve root compression [Unknown]
  - Back pain [Not Recovered/Not Resolved]
  - Drug ineffective [Unknown]
  - Arthralgia [Unknown]
  - Gastrooesophageal reflux disease [Unknown]
